FAERS Safety Report 4533236-X (Version None)
Quarter: 2004Q4

REPORT INFORMATION
  Report Type: 
  Country: None (occurrence: None)
  Receive Date: 20041208
  Receipt Date: 20040819
  Transmission Date: 20050328
  Serious: No
  Sender: FDA-Public Use
  Company Number: USA040875975

PATIENT
  Age: 55 Year
  Sex: Male
  Weight: 91 kg

DRUGS (2)
  1. CYMBALTA [Suspect]
     Dosage: 30 MG DAY
     Dates: start: 20040817
  2. NICOTINE DERMAL PATCH (NICOTINE RESIN) [Concomitant]

REACTIONS (8)
  - ANXIETY [None]
  - DECREASED APPETITE [None]
  - DRY MOUTH [None]
  - FATIGUE [None]
  - INSOMNIA [None]
  - NAUSEA [None]
  - SEDATION [None]
  - VISION BLURRED [None]
